FAERS Safety Report 6031866-X (Version None)
Quarter: 2008Q4

REPORT INFORMATION
  Report Type: 
  Country: None (occurrence: None)
  Receive Date: 20081224
  Receipt Date: 20080903
  Transmission Date: 20090506
  Serious: No
  Sender: FDA-Public Use
  Company Number: 2008PV036609

PATIENT
  Sex: Female

DRUGS (5)
  1. SYMLIN [Suspect]
     Indication: TYPE 2 DIABETES MELLITUS
     Dosage: 120 MCG; ; SC, 60 MCG; ; SC
     Route: 058
     Dates: start: 20080801, end: 20080801
  2. SYMLIN [Suspect]
     Indication: TYPE 2 DIABETES MELLITUS
     Dosage: 120 MCG; ; SC, 60 MCG; ; SC
     Route: 058
     Dates: start: 20080801, end: 20080808
  3. METFORMIN [Concomitant]
  4. HUMALOG [Concomitant]
  5. BYETTA [Concomitant]

REACTIONS (1)
  - BLOOD GLUCOSE INCREASED [None]
